FAERS Safety Report 5667017-0 (Version None)
Quarter: 2008Q1

REPORT INFORMATION
  Report Type: 
  Country: None (occurrence: None)
  Receive Date: 20080315
  Receipt Date: 20080107
  Transmission Date: 20080703
  Serious: No
  Sender: FDA-Public Use
  Company Number: US-ABBOTT-08P-163-0432846-00

PATIENT
  Sex: Female
  Weight: 43.584 kg

DRUGS (6)
  1. HUMIRA [Suspect]
     Indication: CROHN'S DISEASE
     Route: 058
     Dates: start: 20071218, end: 20071218
  2. HUMIRA [Suspect]
     Route: 058
     Dates: start: 20080102, end: 20080102
  3. HUMIRA [Suspect]
     Route: 058
     Dates: start: 20080115
  4. RIFAXIMIN [Suspect]
     Indication: DIARRHOEA
     Route: 048
     Dates: start: 20071218
  5. VITAMINS [Concomitant]
     Indication: VITAMIN SUPPLEMENTATION
     Route: 048
  6. HERBAL SUPPLEMENTS [Concomitant]
     Indication: PHYTOTHERAPY
     Route: 048

REACTIONS (3)
  - FLATULENCE [None]
  - INJECTION SITE HAEMORRHAGE [None]
  - MUSCLE SPASMS [None]
